FAERS Safety Report 9903824 (Version 1)
Quarter: 2014Q1

REPORT INFORMATION
  Report Type: Spontaneous
  Country: US (occurrence: US)
  Receive Date: 20140218
  Receipt Date: 20140218
  Transmission Date: 20141002
  Serious: No
  Sender: FDA-Public Use
  Company Number: US-BIOGENIDEC-2013BI097595

PATIENT
  Sex: Male

DRUGS (2)
  1. AVONEX [Suspect]
     Indication: MULTIPLE SCLEROSIS
     Route: 030
     Dates: start: 20130615
  2. AVONEX [Suspect]
     Indication: MULTIPLE SCLEROSIS
     Route: 030
     Dates: start: 20130710

REACTIONS (9)
  - Memory impairment [Unknown]
  - Rash pustular [Unknown]
  - Muscle spasms [Unknown]
  - Rash [Recovered/Resolved with Sequelae]
  - Rash macular [Unknown]
  - Pyrexia [Recovered/Resolved with Sequelae]
  - Chills [Recovered/Resolved with Sequelae]
  - Pain in extremity [Not Recovered/Not Resolved]
  - Headache [Recovered/Resolved with Sequelae]
